FAERS Safety Report 15775182 (Version 1)
Quarter: 2018Q4

REPORT INFORMATION
  Report Type: Spontaneous
  Country: ES (occurrence: ES)
  Receive Date: 20181231
  Receipt Date: 20181231
  Transmission Date: 20190205
  Serious: Yes (Other)
  Sender: FDA-Public Use
  Company Number: ES-APOTEX-2018AP028279

PATIENT
  Age: 35 Year
  Sex: Female

DRUGS (3)
  1. CELECOXIB. [Suspect]
     Active Substance: CELECOXIB
     Dosage: 200 UNK, UNK
     Route: 065
  2. CELECOXIB. [Suspect]
     Active Substance: CELECOXIB
     Indication: HODGKIN^S DISEASE
     Dosage: 200 MG, BID
     Route: 065
     Dates: start: 201408, end: 201501
  3. LENALIDOMIDE [Concomitant]
     Active Substance: LENALIDOMIDE
     Indication: HODGKIN^S DISEASE
     Dosage: 20 MG,FOR 3 OF EVERY 4 WEEKS
     Route: 065
     Dates: start: 201408, end: 201501

REACTIONS (2)
  - Haemorrhagic anaemia [Unknown]
  - Gastrointestinal haemorrhage [Unknown]

NARRATIVE: CASE EVENT DATE: 201603
